FAERS Safety Report 10485625 (Version 1)
Quarter: 2014Q4

REPORT INFORMATION
  Report Type: Report from Study
  Country: CH (occurrence: CH)
  Receive Date: 20141001
  Receipt Date: 20141001
  Transmission Date: 20150528
  Serious: Yes (Hospitalization)
  Sender: FDA-Public Use
  Company Number: CH-AMGEN-CHECT2014073544

PATIENT
  Age: 53 Year
  Sex: Female
  Weight: 65 kg

DRUGS (3)
  1. PANITUMUMAB [Suspect]
     Active Substance: PANITUMUMAB
     Indication: ANAL CANCER
     Dosage: 390 MG, Q2WK
     Route: 042
     Dates: start: 20140826, end: 20140826
  2. MITOMYCIN. [Concomitant]
     Active Substance: MITOMYCIN
     Indication: ANAL CANCER
     Dosage: 16 MG, QMO
     Route: 042
     Dates: start: 20140826
  3. CAPECITABINE. [Concomitant]
     Active Substance: CAPECITABINE
     Indication: ANAL CANCER
     Dosage: 1300 MG, BID
     Route: 048
     Dates: start: 20140826

REACTIONS (1)
  - Asthenia [Recovered/Resolved]

NARRATIVE: CASE EVENT DATE: 20140914
